FAERS Safety Report 9078912 (Version 1)
Quarter: 2013Q1

REPORT INFORMATION
  Report Type: Spontaneous
  Country: US (occurrence: US)
  Receive Date: 20130130
  Receipt Date: 20130130
  Transmission Date: 20140127
  Serious: No
  Sender: FDA-Public Use
  Company Number: US-BAYER-2013-008839

PATIENT
  Age: 21 Year
  Sex: Female

DRUGS (1)
  1. BEYAZ [Suspect]
     Indication: POLYCYSTIC OVARIES
     Dosage: UNK
     Dates: start: 2012

REACTIONS (4)
  - Abnormal withdrawal bleeding [None]
  - Vaginal discharge [None]
  - Drug dose omission [None]
  - Off label use [None]
